FAERS Safety Report 20549375 (Version 2)
Quarter: 2022Q1

REPORT INFORMATION
  Report Type: Spontaneous
  Country: US (occurrence: US)
  Receive Date: 20220303
  Receipt Date: 20220318
  Transmission Date: 20220424
  Serious: No
  Sender: FDA-Public Use
  Company Number: US-GSKCCFUS-Case-01308876_AE-76209

PATIENT
  Age: 58 Year
  Sex: Female

DRUGS (1)
  1. BENLYSTA [Suspect]
     Active Substance: BELIMUMAB
     Indication: Systemic lupus erythematosus
     Dosage: 200 MG/ML
     Route: 058
     Dates: start: 20220228

REACTIONS (3)
  - Wrong technique in device usage process [Unknown]
  - Incorrect dose administered [Unknown]
  - Device use error [Unknown]

NARRATIVE: CASE EVENT DATE: 20220228
